FAERS Safety Report 4530113-5 (Version None)
Quarter: 2004Q4

REPORT INFORMATION
  Report Type: 
  Country: None (occurrence: None)
  Receive Date: 20041217
  Receipt Date: 20040617
  Transmission Date: 20050328
  Serious: Yes (Hospitalization, Congenital Anomaly)
  Sender: FDA-Public Use
  Company Number: SE-ABBOTT-04P-150-0264574-00

PATIENT

DRUGS (1)
  1. REDUCTIL [Suspect]
     Indication: DRUG EXPOSURE DURING PREGNANCY

REACTIONS (4)
  - ANOMALY OF MIDDLE EAR CONGENITAL [None]
  - CONGENITAL ANOMALY OF INNER EAR [None]
  - CONGENITAL JAW MALFORMATION [None]
  - EAR MALFORMATION [None]
